FAERS Safety Report 17405994 (Version 1)
Quarter: 2020Q1

REPORT INFORMATION
  Report Type: Spontaneous
  Country: US (occurrence: US)
  Receive Date: 20200212
  Receipt Date: 20200212
  Transmission Date: 20200409
  Serious: No
  Sender: FDA-Public Use
  Company Number: US-ALLERGAN-1913680US

PATIENT
  Age: 49 Year
  Sex: Female

DRUGS (18)
  1. METOPROLOL. [Concomitant]
     Active Substance: METOPROLOL
  2. CLARITIN [Concomitant]
     Active Substance: LORATADINE
  3. ALBUTEROL. [Concomitant]
     Active Substance: ALBUTEROL
  4. STRATTERA [Concomitant]
     Active Substance: ATOMOXETINE HYDROCHLORIDE
     Indication: ATTENTION DEFICIT/HYPERACTIVITY DISORDER
  5. LEVOTHYROXINE. [Concomitant]
     Active Substance: LEVOTHYROXINE
  6. ZETIA [Concomitant]
     Active Substance: EZETIMIBE
  7. PLAVIX [Concomitant]
     Active Substance: CLOPIDOGREL BISULFATE
  8. TOPIRAMATE. [Concomitant]
     Active Substance: TOPIRAMATE
     Indication: MIGRAINE
  9. ATORVASTATIN [Concomitant]
     Active Substance: ATORVASTATIN
  10. LANTUS [Concomitant]
     Active Substance: INSULIN GLARGINE
  11. HUMALOG [Concomitant]
     Active Substance: INSULIN LISPRO
  12. DYCYCLINE [Concomitant]
     Indication: GALLBLADDER DISORDER
  13. SYMBICORT [Concomitant]
     Active Substance: BUDESONIDE\FORMOTEROL FUMARATE DIHYDRATE
  14. METFORMIN [Concomitant]
     Active Substance: METFORMIN HYDROCHLORIDE
  15. TAZORAC [Suspect]
     Active Substance: TAZAROTENE
     Indication: ACNE
     Dosage: UNK, QD
     Route: 061
     Dates: start: 201903, end: 201903
  16. GLIPIZIDE. [Concomitant]
     Active Substance: GLIPIZIDE
  17. GABAPENTIN. [Concomitant]
     Active Substance: GABAPENTIN
  18. ASPIRIN. [Concomitant]
     Active Substance: ASPIRIN

REACTIONS (3)
  - Application site discolouration [Not Recovered/Not Resolved]
  - Application site burn [Recovering/Resolving]
  - Skin lesion [Not Recovered/Not Resolved]

NARRATIVE: CASE EVENT DATE: 201903
